FAERS Safety Report 8763085 (Version 3)
Quarter: 2012Q4

REPORT INFORMATION
  Report Type: Spontaneous
  Country: US (occurrence: None)
  Receive Date: 20120827
  Receipt Date: 20121018
  Transmission Date: 20130627
  Serious: Yes (Congenital Anomaly)
  Sender: FDA-Public Use
  Company Number: ADR-2012UNK003

PATIENT
  Age: 280 Day
  Sex: Male
  Weight: 3.1 kg

DRUGS (6)
  1. NEVIRAPINE [Suspect]
     Indication: ACQUIRED IMMUNODEFICIENCY SYNDROME
     Dosage: 1 Course + Oral
     Route: 048
     Dates: start: 20100610
  2. RALTEGRAVIR (ISENTRESS RAL) [Concomitant]
  3. ZIDOVUDINE [Concomitant]
  4. LAMIVUDINE [Concomitant]
  5. LOPINAVIR+RITONAVIR (KALETRA, ALUVIA, LPV/R) [Concomitant]
  6. TENOFOVIR DISOPROXIL FUMARATE [Concomitant]

REACTIONS (2)
  - Volvulus [None]
  - Maternal drugs affecting foetus [None]
